FAERS Safety Report 25660936 (Version 2)
Quarter: 2025Q3

REPORT INFORMATION
  Report Type: Report from Study
  Country: EU (occurrence: EU)
  Receive Date: 20250808
  Receipt Date: 20250922
  Transmission Date: 20251020
  Serious: Yes (Hospitalization)
  Sender: PFIZER
  Company Number: EU-NOVOPROD-1492202

PATIENT
  Age: 89 Year
  Sex: Male

DRUGS (5)
  1. MEDROL [Suspect]
     Active Substance: METHYLPREDNISOLONE
     Indication: Dermatitis bullous
  2. MEDROL [Suspect]
     Active Substance: METHYLPREDNISOLONE
  3. ACTRAPID [Suspect]
     Active Substance: INSULIN HUMAN
     Indication: Diabetes mellitus
     Route: 058
  4. INSULIN NOS [Suspect]
     Active Substance: INSULIN NOS
     Indication: Diabetes mellitus
  5. TRESIBA [Suspect]
     Active Substance: INSULIN DEGLUDEC
     Indication: Diabetes mellitus

REACTIONS (2)
  - Depressed level of consciousness [Unknown]
  - Blood glucose increased [Recovering/Resolving]
